FAERS Safety Report 7361811-6 (Version None)
Quarter: 2011Q1

REPORT INFORMATION
  Report Type: 
  Country: None (occurrence: None)
  Receive Date: 20110318
  Receipt Date: 20110311
  Transmission Date: 20110831
  Serious: Yes (Hospitalization, Other)
  Sender: FDA-Public Use
  Company Number: US-ELI_LILLY_AND_COMPANY-US201103004201

PATIENT
  Sex: Female

DRUGS (10)
  1. ZOCOR [Concomitant]
  2. CELEBREX [Concomitant]
     Indication: PAIN
  3. ASACOL [Concomitant]
  4. VITAMIN D [Concomitant]
  5. TOVIAZ [Concomitant]
     Dosage: 8 MG, UNK
  6. NEXIUM [Concomitant]
  7. THYROID [Concomitant]
  8. FORTEO [Suspect]
     Indication: OSTEOPOROSIS
     Dosage: 20 UG, DAILY (1/D)
  9. FOSAMAX [Concomitant]
  10. TOVIAZ [Concomitant]
     Dosage: 4 MG, UNK

REACTIONS (4)
  - PELVIC FRACTURE [None]
  - BACK PAIN [None]
  - FALL [None]
  - INTENTIONAL DRUG MISUSE [None]
